FAERS Safety Report 7926020-8 (Version None)
Quarter: 2011Q4

REPORT INFORMATION
  Report Type: 
  Country: None (occurrence: None)
  Receive Date: 20111118
  Receipt Date: 20110418
  Transmission Date: 20120403
  Serious: No
  Sender: FDA-Public Use
  Company Number: US-AMGEN-USASP2011020321

PATIENT
  Age: 60 Year
  Sex: Female
  Weight: 56.689 kg

DRUGS (6)
  1. XALATAN [Concomitant]
     Dosage: 0.005 %, UNK
  2. ESTRACE [Concomitant]
     Dosage: 1 MG, UNK
  3. ALLEGRA [Concomitant]
     Dosage: 60 MG, UNK
  4. ENBREL [Suspect]
     Indication: PRODUCT USED FOR UNKNOWN INDICATION
     Dosage: 25 MG, 2 TIMES/WK
     Route: 058
  5. LIPITOR [Concomitant]
     Dosage: 10 MG, UNK
  6. KETOPROFEN [Concomitant]
     Dosage: 50 MG, UNK

REACTIONS (1)
  - CONSTIPATION [None]
